FAERS Safety Report 5387639-4 (Version None)
Quarter: 2007Q3

REPORT INFORMATION
  Report Type: 
  Country: None (occurrence: None)
  Receive Date: 20070716
  Receipt Date: 20070710
  Transmission Date: 20080115
  Serious: Yes (Life-Threatening, Hospitalization)
  Sender: FDA-Public Use
  Company Number: PHBS2007MY11112

PATIENT
  Age: 52 Year
  Sex: Female
  Weight: 39 kg

DRUGS (3)
  1. CLOZARIL [Suspect]
     Dosage: 200 MG, ONCE/SINGLE
     Route: 048
     Dates: start: 20070702, end: 20070702
  2. MODECATE ^SANOFI WINTHROP^ [Concomitant]
     Route: 030
     Dates: start: 19720628, end: 20070628
  3. HALOPERIDOL [Concomitant]
     Dosage: 5 MG, TID
     Dates: end: 20070701

REACTIONS (11)
  - ACCIDENTAL EXPOSURE [None]
  - BLOOD PRESSURE DECREASED [None]
  - DYSPNOEA [None]
  - GLASGOW COMA SCALE ABNORMAL [None]
  - HEART RATE INCREASED [None]
  - INTUBATION [None]
  - LIFE SUPPORT [None]
  - OXYGEN SATURATION DECREASED [None]
  - RESPIRATORY FAILURE [None]
  - RESPIRATORY RATE INCREASED [None]
  - SOMNOLENCE [None]
